FAERS Safety Report 4785651-7 (Version None)
Quarter: 2005Q3

REPORT INFORMATION
  Report Type: 
  Country: None (occurrence: None)
  Receive Date: 20050929
  Receipt Date: 20050926
  Transmission Date: 20060218
  Serious: Yes (Hospitalization)
  Sender: FDA-Public Use
  Company Number: 004959

PATIENT
  Age: 81 Year
  Sex: Male
  Weight: 78.9 kg

DRUGS (5)
  1. DIDANOSINE [Suspect]
     Indication: HIV INFECTION
     Dosage: 400.00 MG, QD, ORAL
     Route: 048
     Dates: start: 20050605, end: 20050606
  2. CRIXIVAN [Suspect]
  3. RETROVIR [Concomitant]
  4. FLOMAX [Concomitant]
  5. ASPIRIN [Concomitant]

REACTIONS (2)
  - CHOLECYSTECTOMY [None]
  - PANCREATITIS ACUTE [None]
